FAERS Safety Report 20721171 (Version 1)
Quarter: 2022Q2

REPORT INFORMATION
  Report Type: Spontaneous
  Country: IT (occurrence: IT)
  Receive Date: 20220418
  Receipt Date: 20220418
  Transmission Date: 20220721
  Serious: Yes (Hospitalization, Other)
  Sender: FDA-Public Use
  Company Number: IT-ADMA BIOLOGICS INC.-IT-2022ADM000014

PATIENT

DRUGS (6)
  1. HUMAN IMMUNOGLOBULIN G [Suspect]
     Active Substance: HUMAN IMMUNOGLOBULIN G
     Indication: Capillary leak syndrome
     Dosage: 1 G/KG/QD
     Route: 042
     Dates: start: 202011, end: 2020
  2. DEXAMETHASONE [Concomitant]
     Active Substance: DEXAMETHASONE
     Indication: COVID-19
     Dosage: 6 MG, QD
     Route: 065
     Dates: start: 2020
  3. DEXAMETHASONE [Concomitant]
     Active Substance: DEXAMETHASONE
     Dosage: 14 MG, QD
     Route: 065
     Dates: start: 2020
  4. ENOXAPARIN [Concomitant]
     Active Substance: ENOXAPARIN
     Indication: COVID-19
     Dosage: 8000 IU, QD
     Route: 065
     Dates: start: 2020
  5. UNSPECIFIED INGREDIENT [Concomitant]
     Active Substance: UNSPECIFIED INGREDIENT
     Indication: COVID-19
     Dosage: UNK
     Route: 065
     Dates: start: 2020
  6. OXYGEN [Concomitant]
     Active Substance: OXYGEN
     Indication: COVID-19
     Dosage: UNK
     Route: 055
     Dates: start: 2020

REACTIONS (3)
  - Respiratory failure [Recovered/Resolved]
  - Pulmonary oedema [Recovered/Resolved]
  - Off label use [Unknown]

NARRATIVE: CASE EVENT DATE: 20201101
